FAERS Safety Report 26214841 (Version 1)
Quarter: 2025Q4

REPORT INFORMATION
  Report Type: Spontaneous
  Country: EU (occurrence: EU)
  Receive Date: 20251230
  Receipt Date: 20251230
  Transmission Date: 20260118
  Serious: Yes (Life-Threatening, Hospitalization, Other)
  Sender: SANDOZ
  Company Number: EU-AstraZeneca-2023A228036

PATIENT
  Age: 75 Year
  Sex: Male
  Weight: 76 kg

DRUGS (25)
  1. PEMETREXED [Suspect]
     Active Substance: PEMETREXED
     Indication: Non-small cell lung cancer metastatic
     Dosage: 500 MG/M^2 500 MG/M2, ONCE EVERY 3  WK (CUMULATIVEDOSE: 1000 MG/M2)
     Dates: start: 20230926, end: 20230926
  2. PEMETREXED [Suspect]
     Active Substance: PEMETREXED
     Dosage: 500 MG/M^2 500 MG/M2, ONCE EVERY 3  WK (CUMULATIVEDOSE: 1000 MG/M2)
     Dates: start: 20230821, end: 20230821
  3. CARBOPLATIN [Suspect]
     Active Substance: CARBOPLATIN
     Indication: Non-small cell lung cancer metastatic
     Dosage: 5 AUC, ONCE EVERY 3 WK
     Dates: start: 20230821, end: 20230926
  4. PEMBROLIZUMAB [Suspect]
     Active Substance: PEMBROLIZUMAB
     Indication: Non-small cell lung cancer metastatic
     Dosage: 200 MG 200 MG, ONCE EVERY 3 WK  (CUMULATIVEDOSE: 400 MG)
     Dates: start: 20230926, end: 20230926
  5. PEMBROLIZUMAB [Suspect]
     Active Substance: PEMBROLIZUMAB
     Dosage: 200 MG 200 MG, ONCE EVERY 3 WK  (CUMULATIVEDOSE: 400 MG)
     Dates: start: 20230821, end: 20230821
  6. CISPLATIN [Suspect]
     Active Substance: CISPLATIN
     Indication: Non-small cell lung cancer metastatic
     Dosage: 75 MG/M^2 75 MG/M2, ONCE EVERY 3 WK
  7. DATOPOTAMAB DERUXTECAN [Suspect]
     Active Substance: DATOPOTAMAB DERUXTECAN
     Indication: Non-small cell lung cancer metastatic
     Dosage: AUC 5
     Dates: start: 20230821, end: 20230821
  8. DATOPOTAMAB DERUXTECAN [Suspect]
     Active Substance: DATOPOTAMAB DERUXTECAN
     Dosage: AUC 5
     Dates: start: 20230926, end: 20230926
  9. ROSUVASTATIN CALCIUM [Concomitant]
     Active Substance: ROSUVASTATIN CALCIUM
     Indication: Dyslipidaemia
     Dosage: 20 MG 20 MG, QD
  10. LEVETIRACETAM [Concomitant]
     Active Substance: LEVETIRACETAM
     Indication: Product used for unknown indication
     Dosage: 500 MG 500 MG, ONCE EVERY 12HR
  11. TIOTROPIUM BROMIDE MONOHYDRATE [Concomitant]
     Active Substance: TIOTROPIUM BROMIDE MONOHYDRATE
     Indication: Chronic obstructive pulmonary disease
     Dosage: AILY 18 DAILY
  12. SODIUM CHLORIDE [Concomitant]
     Active Substance: SODIUM CHLORIDE
     Indication: Product used for unknown indication
     Dosage: OTHER2 L
  13. METOPROLOL TARTRATE [Concomitant]
     Active Substance: METOPROLOL TARTRATE
     Indication: Arrhythmia
     Dosage: 100 MG 100 MG, ONCE EVERY 12HR
     Dates: start: 20150101
  14. ESCITALOPRAM OXALATE [Concomitant]
     Active Substance: ESCITALOPRAM OXALATE
     Indication: Depression
     Dosage: 10 MG 10 MG
  15. FOLIC ACID [Concomitant]
     Active Substance: FOLIC ACID
     Indication: Prophylaxis
     Dosage: 5 MG 5 MG, QD
     Dates: start: 20230801
  16. LEVOTHYROXINE [Concomitant]
     Active Substance: LEVOTHYROXINE
     Indication: Hypothyroidism
     Dosage: 75 MG 75 MG, QD
     Dates: start: 20170101
  17. SALMETEROL XINAFOATE [Concomitant]
     Active Substance: SALMETEROL XINAFOATE
     Indication: Chronic obstructive pulmonary disease
     Dosage: 550, BID
  18. LEVODOPA [Concomitant]
     Active Substance: LEVODOPA
     Indication: Parkinson^s disease
     Dosage: 325 MG 325 MG, ONCE EVERY 12HR
     Dates: start: 19750101
  19. TORSEMIDE [Concomitant]
     Active Substance: TORSEMIDE
     Indication: Hypertension
     Dosage: 10 MG 10 MG, QD
     Dates: start: 20150101
  20. PRAMIPEXOLE DIHYDROCHLORIDE [Concomitant]
     Active Substance: PRAMIPEXOLE DIHYDROCHLORIDE
     Indication: Parkinson^s disease
     Dosage: 2.1 MG 2.1 MG, QD
     Dates: start: 19750101
  21. TAMSULOSIN HYDROCHLORIDE [Concomitant]
     Active Substance: TAMSULOSIN HYDROCHLORIDE
     Indication: Benign prostatic hyperplasia
     Dosage: 0.4 MG 0.4 MG, QD
     Dates: start: 20230101
  22. CHLORHEXIDINE [Concomitant]
     Active Substance: CHLORHEXIDINE
     Indication: Stomatitis
     Dosage: 15 ML 15 ML
  23. AMANTADINE HYDROCHLORIDE [Concomitant]
     Active Substance: AMANTADINE HYDROCHLORIDE
     Indication: Parkinson^s disease
     Dosage: 100 MG 100 MG, QD
     Dates: start: 19750101
  24. LANSOPRAZOLE [Concomitant]
     Active Substance: LANSOPRAZOLE
     Indication: Gastrooesophageal reflux disease
     Dosage: 30 MG 30 MG, ONCE EVERY 12HR
     Dates: start: 20200101
  25. HYDROXOCOBALAMIN ACETATE [Concomitant]
     Active Substance: HYDROXOCOBALAMIN ACETATE
     Indication: Vitamin B12 deficiency
     Dosage: 12 ML 12 ML

REACTIONS (2)
  - Thrombocytopenia [Not Recovered/Not Resolved]
  - Rash [Not Recovered/Not Resolved]

NARRATIVE: CASE EVENT DATE: 20231004
